FAERS Safety Report 4281025-6 (Version None)
Quarter: 2004Q1

REPORT INFORMATION
  Report Type: 
  Country: None (occurrence: None)
  Receive Date: 20040129
  Receipt Date: 20030228
  Transmission Date: 20041129
  Serious: Yes (Other)
  Sender: FDA-Public Use
  Company Number: US-BRISTOL-MYERS SQUIBB COMPANY-12198271

PATIENT

DRUGS (1)
  1. CISPLATIN [Suspect]
     Route: 042

REACTIONS (1)
  - HYPOTENSION [None]
